FAERS Safety Report 4865578-2 (Version None)
Quarter: 2005Q4

REPORT INFORMATION
  Report Type: 
  Country: None (occurrence: None)
  Receive Date: 20051220
  Receipt Date: 20051130
  Transmission Date: 20060501
  Serious: Yes (Death, Hospitalization)
  Sender: FDA-Public Use
  Company Number: DE200511002611

PATIENT
  Age: 79 Year
  Sex: Female

DRUGS (1)
  1. YENTREVE(DULOXETINE HYDROCHLORIDE) CAPSULE [Suspect]
     Dosage: 40 MG ORAL
     Route: 048
     Dates: start: 20050614, end: 20050901

REACTIONS (7)
  - BRONCHIAL CARCINOMA [None]
  - CEREBRAL HAEMORRHAGE [None]
  - FALL [None]
  - LYMPHOMA [None]
  - OVARIAN CYST [None]
  - PNEUMONIA [None]
  - RESPIRATORY FAILURE [None]
